FAERS Safety Report 6715787-2 (Version None)
Quarter: 2010Q2

REPORT INFORMATION
  Report Type: 
  Country: None (occurrence: None)
  Receive Date: 20100507
  Receipt Date: 20100503
  Transmission Date: 20101027
  Serious: Yes (Death)
  Sender: FDA-Public Use
  Company Number: TR-ELI_LILLY_AND_COMPANY-TR201005000417

PATIENT

DRUGS (4)
  1. HUMULIN R [Suspect]
     Dosage: 4 U, 3/D (4 U/MORNING, 4 U/NOON AND 4 U/EVENING)
     Route: 064
     Dates: end: 20100401
  2. IRON [Concomitant]
     Dosage: UNK, DAILY (1/D)
     Route: 065
  3. FOLIC ACID [Concomitant]
     Dosage: UNK, DAILY (1/D)
     Route: 065
  4. INSULIN [Concomitant]
     Dosage: 6 U, DAILY (1/D) (AT NIGHT)
     Route: 064

REACTIONS (4)
  - DEHYDRATION [None]
  - DRUG EXPOSURE DURING PREGNANCY [None]
  - INTRA-UTERINE DEATH [None]
  - MATERNAL DRUGS AFFECTING FOETUS [None]
